FAERS Safety Report 7197397-9 (Version None)
Quarter: 2010Q4

REPORT INFORMATION
  Report Type: 
  Country: None (occurrence: None)
  Receive Date: 20101210
  Receipt Date: 20101204
  Transmission Date: 20110411
  Serious: Yes (Hospitalization)
  Sender: FDA-Public Use
  Company Number: 2010SP062671

PATIENT
  Age: 78 Year
  Sex: Male
  Weight: 58.9 kg

DRUGS (3)
  1. PEG-INTRON [Suspect]
     Indication: HEPATITIS C
     Dosage: 0.5 MCG/KG; QW; SC
     Route: 058
     Dates: start: 20071211, end: 20101125
  2. LOXONIN [Concomitant]
  3. MAGNESIUM [Concomitant]

REACTIONS (7)
  - ABDOMINAL PAIN [None]
  - DUODENAL ULCER [None]
  - HAEMATEMESIS [None]
  - HAEMATOCHEZIA [None]
  - LOWER GASTROINTESTINAL HAEMORRHAGE [None]
  - MELAENA [None]
  - SUBDURAL HAEMATOMA [None]
